FAERS Safety Report 9683589 (Version 1)
Quarter: 2013Q4

REPORT INFORMATION
  Report Type: Spontaneous
  Country: IT (occurrence: IT)
  Receive Date: 20131112
  Receipt Date: 20131112
  Transmission Date: 20140711
  Serious: Yes (Hospitalization)
  Sender: FDA-Public Use
  Company Number: IT-TEVA-441926ISR

PATIENT
  Age: 62 Year
  Sex: Male
  Weight: 58 kg

DRUGS (2)
  1. FLUOROURACILE TEVA [Suspect]
     Indication: COLON CANCER
     Dosage: 1860 MILLIGRAM DAILY; CYCLE OF 14 DAYS
     Route: 042
     Dates: start: 20130320, end: 20130903
  2. FLUOROURACILE TEVA [Suspect]
     Dosage: 620 MILLIGRAM DAILY; CYCLE OF 14 DAYS
     Route: 040
     Dates: start: 20130320, end: 20130903

REACTIONS (1)
  - Acute myocardial infarction [Recovered/Resolved with Sequelae]
